FAERS Safety Report 5750972-8 (Version None)
Quarter: 2008Q2

REPORT INFORMATION
  Report Type: 
  Country: None (occurrence: None)
  Receive Date: 20080528
  Receipt Date: 20080521
  Transmission Date: 20081010
  Serious: Yes (Hospitalization, Disabling)
  Sender: FDA-Public Use
  Company Number: FR-JNJFOC-20080504088

PATIENT
  Sex: Female

DRUGS (15)
  1. MOTILIUM [Suspect]
     Indication: DRUG USE FOR UNKNOWN INDICATION
     Route: 048
  2. IMODIUM [Suspect]
     Indication: DRUG USE FOR UNKNOWN INDICATION
     Route: 048
  3. OFLOCET [Suspect]
     Indication: DRUG USE FOR UNKNOWN INDICATION
     Route: 048
  4. FUROSEMIDE [Suspect]
     Indication: DRUG USE FOR UNKNOWN INDICATION
     Route: 065
  5. ACUPAN [Suspect]
     Indication: DRUG USE FOR UNKNOWN INDICATION
     Route: 065
  6. CALCIPARINE [Suspect]
     Indication: DRUG USE FOR UNKNOWN INDICATION
     Route: 058
  7. LACTULOSE [Concomitant]
     Route: 065
  8. FOLIC ACID [Concomitant]
     Route: 065
  9. TARDYFERON [Concomitant]
     Route: 065
  10. CORDARONE [Concomitant]
     Route: 065
  11. ALDACTONE [Concomitant]
     Route: 065
  12. TAREG [Concomitant]
     Route: 065
  13. DOLIPRANE [Concomitant]
     Route: 065
  14. TRAMADOL HCL [Concomitant]
     Route: 065
  15. LEVOTHYROXINE SODIUM [Concomitant]
     Route: 065

REACTIONS (1)
  - TENDON DISORDER [None]
